FAERS Safety Report 24664749 (Version 1)
Quarter: 2024Q4

REPORT INFORMATION
  Report Type: Spontaneous
  Country: US (occurrence: US)
  Receive Date: 20241126
  Receipt Date: 20241126
  Transmission Date: 20250115
  Serious: No
  Sender: PHARMING GROUP
  Company Number: US-PHARMING-PHAUS2024001006

PATIENT

DRUGS (1)
  1. RUCONEST [Suspect]
     Active Substance: CONESTAT ALFA
     Indication: Immunodeficiency common variable
     Dosage: 4200 IU, PRN
     Route: 042
     Dates: start: 202403

REACTIONS (2)
  - Fall [Unknown]
  - Product use in unapproved indication [Unknown]
